FAERS Safety Report 8560500-X (Version None)
Quarter: 2012Q3

REPORT INFORMATION
  Report Type: 
  Country: None (occurrence: None)
  Receive Date: 20120802
  Receipt Date: 20120723
  Transmission Date: 20120928
  Serious: No
  Sender: FDA-Public Use
  Company Number: US-ASTRAZENECA-2012SE51759

PATIENT
  Age: 76 Year
  Sex: Male
  Weight: 88.5 kg

DRUGS (7)
  1. LIPITOR [Concomitant]
  2. AMLODIPINE [Concomitant]
  3. NEXIUM [Suspect]
     Indication: DYSPEPSIA
     Route: 048
     Dates: start: 20120701
  4. METFORMIN HYDROCHLORIDE [Concomitant]
     Indication: DIABETES MELLITUS
  5. METOPROLOL TARTRATE [Concomitant]
     Indication: BLOOD PRESSURE
  6. LISINOPRIL [Concomitant]
     Indication: BLOOD PRESSURE
  7. GENUVIA [Concomitant]
     Indication: DIABETES MELLITUS

REACTIONS (3)
  - ABDOMINAL DISTENSION [None]
  - FLATULENCE [None]
  - OFF LABEL USE [None]
